FAERS Safety Report 7314066-2 (Version None)
Quarter: 2011Q1

REPORT INFORMATION
  Report Type: 
  Country: None (occurrence: None)
  Receive Date: 20110225
  Receipt Date: 20100510
  Transmission Date: 20110831
  Serious: No
  Sender: FDA-Public Use
  Company Number: US-MYLANLABS-2010S1007062

PATIENT
  Age: 31 Year
  Sex: Female
  Weight: 86.18 kg

DRUGS (4)
  1. AMNESTEEM [Suspect]
     Indication: ACNE
     Route: 048
     Dates: end: 20100301
  2. FLONASE [Concomitant]
  3. CLARAVIS [Suspect]
     Indication: ACNE
     Route: 048
  4. IMPLANON [Suspect]

REACTIONS (4)
  - ALOPECIA [None]
  - LIVER FUNCTION TEST ABNORMAL [None]
  - FATIGUE [None]
  - METRORRHAGIA [None]
